FAERS Safety Report 20466255 (Version 2)
Quarter: 2022Q4

REPORT INFORMATION
  Report Type: Spontaneous
  Country: US (occurrence: US)
  Receive Date: 20220213
  Receipt Date: 20221128
  Transmission Date: 20230113
  Serious: No
  Sender: FDA-Public Use
  Company Number: US-TEVA-2022-US-2000512

PATIENT
  Sex: Male

DRUGS (1)
  1. AJOVY [Suspect]
     Active Substance: FREMANEZUMAB-VFRM
     Indication: Product used for unknown indication
     Dosage: 225 MG / 1.5 ML
     Route: 042

REACTIONS (3)
  - Device delivery system issue [Unknown]
  - Injection site pain [Unknown]
  - Incorrect dose administered by device [Unknown]
